FAERS Safety Report 20538958 (Version 1)
Quarter: 2022Q1

REPORT INFORMATION
  Report Type: Spontaneous
  Country: BR (occurrence: BR)
  Receive Date: 20220302
  Receipt Date: 20220302
  Transmission Date: 20220423
  Serious: Yes (Other)
  Sender: FDA-Public Use
  Company Number: BR-BAYER-2021A214177

PATIENT
  Age: 62 Year
  Sex: Female

DRUGS (1)
  1. XARELTO [Suspect]
     Active Substance: RIVAROXABAN
     Indication: Pulmonary embolism
     Dosage: 20 MG, QD
     Route: 048
     Dates: start: 201901

REACTIONS (7)
  - Intracardiac thrombus [Unknown]
  - Venous thrombosis [Unknown]
  - Pulmonary embolism [Unknown]
  - Product confusion [Unknown]
  - Overdose [Unknown]
  - Intentional product misuse [Unknown]
  - Incorrect dosage administered [Unknown]

NARRATIVE: CASE EVENT DATE: 20210917
